FAERS Safety Report 4810499-4 (Version None)
Quarter: 2005Q4

REPORT INFORMATION
  Report Type: 
  Country: None (occurrence: None)
  Receive Date: 20051025
  Receipt Date: 20051025
  Transmission Date: 20060501
  Serious: Yes (Life-Threatening, Hospitalization, Disabling)
  Sender: FDA-Public Use
  Company Number: None

PATIENT
  Age: 57 Year
  Sex: Female
  Weight: 54.4316 kg

DRUGS (5)
  1. ENBREL [Suspect]
     Indication: ANKYLOSING SPONDYLITIS
     Dosage: INJECTION 2X WEEKLY
     Dates: start: 20030201, end: 20040423
  2. ENBREL [Suspect]
     Indication: RHEUMATOID ARTHRITIS
     Dosage: INJECTION 2X WEEKLY
     Dates: start: 20030201, end: 20040423
  3. VIOXX [Suspect]
     Indication: ANKYLOSING SPONDYLITIS
     Dosage: 1 PILL DAILY
     Dates: start: 20030201, end: 20040423
  4. VIOXX [Suspect]
     Indication: RHEUMATOID ARTHRITIS
     Dosage: 1 PILL DAILY
     Dates: start: 20030201, end: 20040423
  5. PLASMA PHERESIS [Concomitant]

REACTIONS (8)
  - BLOOD LACTATE DEHYDROGENASE INCREASED [None]
  - CEREBROVASCULAR ACCIDENT [None]
  - HYPOAESTHESIA [None]
  - LABORATORY TEST ABNORMAL [None]
  - MIGRAINE [None]
  - NEUROLOGICAL SYMPTOM [None]
  - PAIN [None]
  - THROMBOTIC THROMBOCYTOPENIC PURPURA [None]
